FAERS Safety Report 10962120 (Version 1)
Quarter: 2015Q1

REPORT INFORMATION
  Report Type: Other
  Country: FR (occurrence: FR)
  Receive Date: 20150327
  Receipt Date: 20150327
  Transmission Date: 20150721
  Serious: Yes (Hospitalization)
  Sender: FDA-Public Use
  Company Number: FR-ASTELLAS-2015EU005725

PATIENT
  Age: 6 Year
  Sex: Female
  Weight: 18 kg

DRUGS (1)
  1. PROGRAF [Suspect]
     Active Substance: TACROLIMUS\TACROLIMUS ANHYDROUS
     Indication: HEART TRANSPLANT
     Dosage: UNK, UNKNOWN FREQ.
     Route: 048
     Dates: start: 2011, end: 20140131

REACTIONS (2)
  - Lymphadenopathy [Recovered/Resolved]
  - Overdose [Recovered/Resolved]

NARRATIVE: CASE EVENT DATE: 20140131
